FAERS Safety Report 7369188-7 (Version None)
Quarter: 2011Q1

REPORT INFORMATION
  Report Type: 
  Country: None (occurrence: None)
  Receive Date: 20110323
  Receipt Date: 20110315
  Transmission Date: 20110831
  Serious: Yes (Hospitalization)
  Sender: FDA-Public Use
  Company Number: B0706236A

PATIENT

DRUGS (2)
  1. BIRTH CONTROL [Concomitant]
     Indication: CONTRACEPTION
  2. ALLI [Suspect]

REACTIONS (1)
  - CONSTIPATION [None]
